FAERS Safety Report 24653492 (Version 1)
Quarter: 2024Q4

REPORT INFORMATION
  Report Type: Spontaneous
  Country: US (occurrence: US)
  Receive Date: 20241122
  Receipt Date: 20241122
  Transmission Date: 20250115
  Serious: Yes (Other)
  Sender: NOVO NORDISK
  Company Number: US-NOVOPROD-1284693

PATIENT
  Age: 71 Year
  Sex: Female

DRUGS (4)
  1. TRESIBA [Suspect]
     Active Substance: INSULIN DEGLUDEC
     Indication: Product used for unknown indication
     Dosage: UNK
     Route: 058
  2. TRESIBA [Suspect]
     Active Substance: INSULIN DEGLUDEC
     Dosage: 10 IU
     Route: 058
  3. LANTUS SOLOSTAR [Suspect]
     Active Substance: INSULIN GLARGINE
     Indication: Product used for unknown indication
     Dosage: 100 IU, QD
     Route: 058
  4. HUMULIN U [Suspect]
     Active Substance: INSULIN HUMAN
     Indication: Product used for unknown indication
     Dosage: UNK

REACTIONS (5)
  - Anaphylactic reaction [Unknown]
  - Swelling [Unknown]
  - Oedema peripheral [Unknown]
  - Bladder discomfort [Unknown]
  - Visual impairment [Unknown]

NARRATIVE: CASE EVENT DATE: 20240801
